FAERS Safety Report 5367754-1 (Version None)
Quarter: 2007Q2

REPORT INFORMATION
  Report Type: 
  Country: None (occurrence: None)
  Receive Date: 20070622
  Receipt Date: 20070308
  Transmission Date: 20071010
  Serious: No
  Sender: FDA-Public Use
  Company Number: US-ASTRAZENECA-2007UW04343

PATIENT
  Age: 87 Year
  Sex: Female
  Weight: 95.3 kg

DRUGS (13)
  1. PULMICORT [Suspect]
     Indication: ASTHMA
     Dosage: 1 PUFF BID
     Route: 055
     Dates: start: 20070101
  2. PULMICORT [Suspect]
     Indication: BRONCHITIS
     Dosage: 1 PUFF BID
     Route: 055
     Dates: start: 20070101
  3. PULMICORT [Suspect]
     Indication: COUGH
     Dosage: 1 PUFF BID
     Route: 055
     Dates: start: 20070101
  4. ALBUTEROL [Concomitant]
  5. LIPITOR [Concomitant]
  6. ZETIA [Concomitant]
  7. AVAPRO [Concomitant]
  8. ACTOS [Concomitant]
  9. SYNTHROID [Concomitant]
  10. ZANTAC [Concomitant]
  11. TOPROL-XL [Concomitant]
     Route: 048
  12. ALLOPURINOL [Concomitant]
  13. COUMADIN [Concomitant]

REACTIONS (1)
  - DYSPNOEA [None]
